FAERS Safety Report 26134774 (Version 1)
Quarter: 2025Q4

REPORT INFORMATION
  Report Type: Spontaneous
  Country: US (occurrence: US)
  Receive Date: 20251209
  Receipt Date: 20251209
  Transmission Date: 20260117
  Serious: No
  Sender: AUROBINDO
  Company Number: US-AUROBINDO-AUR-APL-2025-032067

PATIENT
  Age: 66 Year
  Sex: Male
  Weight: 83.91 kg

DRUGS (2)
  1. MIRTAZAPINE [Suspect]
     Active Substance: MIRTAZAPINE
     Indication: Anxiety disorder
     Dosage: UNK, ONCE A DAY (ONCE AT NIGHT)
     Dates: start: 20250614
  2. GABAPENTIN [Concomitant]
     Active Substance: GABAPENTIN
     Indication: Insomnia
     Dosage: UNK
     Route: 065

REACTIONS (1)
  - Product taste abnormal [Unknown]

NARRATIVE: CASE EVENT DATE: 20250614
